FAERS Safety Report 20719269 (Version 1)
Quarter: 2022Q2

REPORT INFORMATION
  Report Type: Spontaneous
  Country: US (occurrence: None)
  Receive Date: 20220416
  Receipt Date: 20220416
  Transmission Date: 20220720
  Serious: Yes (Other)
  Sender: FDA-Public Use
  Company Number: None

PATIENT
  Age: 79 Year
  Sex: Female
  Weight: 105.75 kg

DRUGS (1)
  1. EVUSHELD [Suspect]
     Active Substance: CILGAVIMAB\TIXAGEVIMAB
     Indication: Polymyalgia rheumatica
     Dosage: OTHER QUANTITY : 2 INJECTION(S);?OTHER FREQUENCY : TWO SHOTS ONCE;?
     Route: 030
     Dates: start: 20220415, end: 20220415

REACTIONS (2)
  - Muscle spasms [None]
  - Muscle spasms [None]

NARRATIVE: CASE EVENT DATE: 20220416
